FAERS Safety Report 6425270-X (Version None)
Quarter: 2009Q4

REPORT INFORMATION
  Report Type: 
  Country: None (occurrence: None)
  Receive Date: 20091030
  Receipt Date: 20091030
  Transmission Date: 20100525
  Serious: Yes (Other)
  Sender: FDA-Public Use
  Company Number: None

PATIENT
  Sex: Male
  Weight: 76.2043 kg

DRUGS (2)
  1. BUMETANIDE [Suspect]
     Indication: CARDIAC FAILURE CONGESTIVE
     Dates: start: 20091001
  2. BUMETANIDE [Suspect]
     Indication: OEDEMA
     Dates: start: 20091001

REACTIONS (12)
  - BALANCE DISORDER [None]
  - DIZZINESS [None]
  - DRY MOUTH [None]
  - DYSARTHRIA [None]
  - DYSPNOEA [None]
  - HYPOTENSION [None]
  - MUSCULAR WEAKNESS [None]
  - NAUSEA [None]
  - PRURITUS [None]
  - RESPIRATION ABNORMAL [None]
  - SOMNOLENCE [None]
  - THIRST [None]
